FAERS Safety Report 8399454-8 (Version None)
Quarter: 2012Q2

REPORT INFORMATION
  Report Type: 
  Country: None (occurrence: None)
  Receive Date: 20120323
  Receipt Date: 20110714
  Transmission Date: 20120825
  Serious: Yes (Hospitalization, Other)
  Sender: FDA-Public Use
  Company Number: 163-21880-11012037

PATIENT
  Age: 61 Year
  Sex: Female

DRUGS (9)
  1. PRILOSEC [Concomitant]
  2. OMEPRAZOLE [Concomitant]
  3. BACTRIM DS [Concomitant]
  4. PREVACID [Concomitant]
  5. DECADRON [Concomitant]
  6. LOMOTIL [Concomitant]
  7. CYMBALTA [Concomitant]
  8. REVLIMID [Suspect]
     Indication: MULTIPLE MYELOMA
     Dosage: 25 MG, 1 IN 1 D, PO
     Route: 048
     Dates: start: 20090501
  9. ASPIRIN [Concomitant]

REACTIONS (3)
  - CELLULITIS [None]
  - IMMUNOSUPPRESSION [None]
  - UPPER RESPIRATORY TRACT INFECTION [None]
